FAERS Safety Report 14410145 (Version 1)
Quarter: 2018Q1

REPORT INFORMATION
  Report Type: Spontaneous
  Country: US (occurrence: US)
  Receive Date: 20180119
  Receipt Date: 20180119
  Transmission Date: 20180509
  Serious: No
  Sender: FDA-Public Use
  Company Number: US-PFIZER INC-2018024275

PATIENT
  Sex: Female

DRUGS (1)
  1. ADVIL [Suspect]
     Active Substance: IBUPROFEN
     Dosage: FOUR OR FIVE ADVIL 200 MG

REACTIONS (3)
  - Confusional state [Unknown]
  - Intentional product misuse [Unknown]
  - Hallucination [Unknown]
